FAERS Safety Report 12968861 (Version 4)
Quarter: 2017Q1

REPORT INFORMATION
  Report Type: Spontaneous
  Country: AU (occurrence: AU)
  Receive Date: 20161123
  Receipt Date: 20170302
  Transmission Date: 20170428
  Serious: Yes (Other)
  Sender: FDA-Public Use
  Company Number: AU-PFIZER INC-2016542799

PATIENT
  Age: 77 Year
  Sex: Female

DRUGS (1)
  1. HYDROCORTISONE. [Suspect]
     Active Substance: HYDROCORTISONE
     Indication: ADDISON^S DISEASE
     Dosage: UNK

REACTIONS (2)
  - Adrenocortical insufficiency acute [Unknown]
  - Coeliac disease [Unknown]

NARRATIVE: CASE EVENT DATE: 20150607
